FAERS Safety Report 5989094-X (Version None)
Quarter: 2008Q4

REPORT INFORMATION
  Report Type: 
  Country: None (occurrence: None)
  Receive Date: 20081210
  Receipt Date: 20081127
  Transmission Date: 20090506
  Serious: Yes (Hospitalization)
  Sender: FDA-Public Use
  Company Number: JP-ABBOTT-07P-087-0424466-00

PATIENT
  Age: 79 Year
  Sex: Male

DRUGS (8)
  1. LEUPROLIDE ACETATE [Suspect]
     Indication: PROSTATE CANCER STAGE II
     Route: 058
     Dates: start: 20060608
  2. LEUPROLIDE ACETATE [Suspect]
     Dates: start: 20060316, end: 20060511
  3. VOGLIBOSE [Concomitant]
     Indication: DIABETES MELLITUS
     Route: 048
  4. BICALUTAMIDE [Concomitant]
     Indication: PROSTATE CANCER STAGE II
     Route: 048
  5. NOVORAPID 30 MIX [Concomitant]
     Indication: DIABETES MELLITUS
     Route: 058
  6. LEVOFLOXACIN [Concomitant]
     Indication: CATARACT
     Route: 047
  7. DICLOFENAC SODIUM [Concomitant]
     Indication: CATARACT
     Route: 047
  8. CEFCAPENE PIVOXIL HYDROCHLORIDE [Concomitant]
     Indication: CYSTITIS
     Route: 048
     Dates: start: 20061120, end: 20061126

REACTIONS (2)
  - CYSTITIS [None]
  - PULMONARY TUBERCULOSIS [None]
